FAERS Safety Report 9299098 (Version 5)
Quarter: 2013Q4

REPORT INFORMATION
  Report Type: Spontaneous
  Country: US (occurrence: US)
  Receive Date: 20130520
  Receipt Date: 20131213
  Transmission Date: 20140711
  Serious: Yes (Hospitalization, Other)
  Sender: FDA-Public Use
  Company Number: US-009507513-1201USA00746

PATIENT
  Sex: Female
  Weight: 60.77 kg

DRUGS (3)
  1. FOSAMAX [Suspect]
     Indication: OSTEOPOROSIS
     Dosage: 70 MG, QW
     Route: 048
     Dates: start: 200511, end: 201007
  2. FOSAMAX [Suspect]
     Indication: BONE DENSITY DECREASED
  3. ALENDRONATE SODIUM [Suspect]
     Dosage: 70 MG, UNK

REACTIONS (43)
  - Femur fracture [Unknown]
  - Intramedullary rod insertion [Unknown]
  - Bladder cancer [Unknown]
  - Thrombosis [Unknown]
  - Nervous system disorder [Unknown]
  - Wrist fracture [Unknown]
  - Fall [Unknown]
  - Tonsillectomy [Unknown]
  - Hysterectomy [Unknown]
  - Appendicectomy [Unknown]
  - Oestrogen deficiency [Unknown]
  - Scoliosis [Unknown]
  - Spinal compression fracture [Unknown]
  - Arrhythmia [Unknown]
  - Hypothyroidism [Not Recovered/Not Resolved]
  - Cardiac failure [Unknown]
  - Ulcer [Unknown]
  - Osteoarthritis [Unknown]
  - Cataract operation [Unknown]
  - Somnolence [Unknown]
  - Fall [Unknown]
  - Haemoglobin decreased [Unknown]
  - Fall [Unknown]
  - Hand fracture [Recovered/Resolved]
  - Fear [Recovered/Resolved]
  - Kyphosis [Unknown]
  - Resting tremor [Unknown]
  - Hyperlipidaemia [Unknown]
  - Haematuria [Unknown]
  - Insomnia [Unknown]
  - Urinary incontinence [Unknown]
  - Atrial fibrillation [Unknown]
  - Bladder neoplasm surgery [Unknown]
  - Peripheral vascular disorder [Unknown]
  - Osteopenia [Unknown]
  - Oedema [Unknown]
  - Body temperature increased [Unknown]
  - Asthenia [Unknown]
  - Back pain [Unknown]
  - Pain in extremity [Unknown]
  - Gastrooesophageal reflux disease [Unknown]
  - Muscle spasms [Unknown]
  - Constipation [Unknown]
